FAERS Safety Report 9858034 (Version 1)
Quarter: 2014Q1

REPORT INFORMATION
  Report Type: Spontaneous
  Country: US (occurrence: US)
  Receive Date: 20140131
  Receipt Date: 20140131
  Transmission Date: 20141002
  Serious: Yes (Hospitalization)
  Sender: FDA-Public Use
  Company Number: US-JNJFOC-20140115938

PATIENT
  Age: 77 Year
  Sex: Female

DRUGS (11)
  1. XARELTO [Suspect]
     Indication: CEREBROVASCULAR ACCIDENT PROPHYLAXIS
     Route: 048
     Dates: start: 201309, end: 20140116
  2. XARELTO [Suspect]
     Indication: CEREBROVASCULAR ACCIDENT PROPHYLAXIS
     Route: 048
     Dates: start: 2013, end: 201309
  3. XARELTO [Suspect]
     Indication: ATRIAL FIBRILLATION
     Route: 048
     Dates: start: 201309, end: 20140116
  4. XARELTO [Suspect]
     Indication: ATRIAL FIBRILLATION
     Route: 048
     Dates: start: 2013, end: 201309
  5. BABY ASPIRIN [Suspect]
     Indication: PRODUCT USED FOR UNKNOWN INDICATION
     Route: 065
     Dates: start: 201309
  6. MULTAQ [Concomitant]
     Indication: HEART RATE IRREGULAR
     Route: 048
  7. CARDIZEM [Concomitant]
     Indication: BLOOD PRESSURE
     Route: 048
  8. VERAPAMIL HYDROCHLORIDE [Concomitant]
     Indication: BLOOD PRESSURE
     Route: 048
  9. TOPROL [Concomitant]
     Indication: BLOOD PRESSURE
     Route: 048
  10. XANAX [Concomitant]
     Indication: SLEEP DISORDER
     Dosage: 1 MG-3 MG/1 MG ONCE NIGHTLY
     Route: 048
  11. CEPHALEXIN [Concomitant]
     Indication: KIDNEY INFECTION
     Route: 048
     Dates: start: 201302

REACTIONS (11)
  - Abnormal loss of weight [Not Recovered/Not Resolved]
  - Asthenia [Not Recovered/Not Resolved]
  - Pain in extremity [Not Recovered/Not Resolved]
  - Abasia [Not Recovered/Not Resolved]
  - Dizziness [Not Recovered/Not Resolved]
  - Heart rate decreased [Recovered/Resolved]
  - Blood count abnormal [Recovered/Resolved]
  - Muscular weakness [Not Recovered/Not Resolved]
  - Pallor [Unknown]
  - Syncope [Recovered/Resolved]
  - Hypoacusis [Not Recovered/Not Resolved]
